FAERS Safety Report 7112318-2 (Version None)
Quarter: 2010Q4

REPORT INFORMATION
  Report Type: 
  Country: None (occurrence: None)
  Receive Date: 20101119
  Receipt Date: 20100824
  Transmission Date: 20110411
  Serious: No
  Sender: FDA-Public Use
  Company Number: A0870209A

PATIENT
  Age: 77 Year
  Sex: Male

DRUGS (5)
  1. AVODART [Suspect]
     Indication: BENIGN PROSTATIC HYPERPLASIA
     Dosage: .5MG PER DAY
     Route: 048
     Dates: start: 20100601
  2. CLONAZEPAM [Concomitant]
  3. METOPROLOL [Concomitant]
  4. ALTACE [Concomitant]
  5. NORVASC [Concomitant]

REACTIONS (4)
  - DRUG INEFFECTIVE [None]
  - ORAL PAIN [None]
  - PRODUCT QUALITY ISSUE [None]
  - URINARY TRACT DISORDER [None]
